FAERS Safety Report 23267476 (Version 1)
Quarter: 2023Q4

REPORT INFORMATION
  Report Type: Report from Study
  Country: NZ (occurrence: NZ)
  Receive Date: 20231206
  Receipt Date: 20231206
  Transmission Date: 20240110
  Serious: Yes (Hospitalization, Other)
  Sender: FDA-Public Use
  Company Number: NZ-PFIZER INC-202300207010

PATIENT
  Age: 68 Year
  Sex: Female
  Weight: 58.9 kg

DRUGS (9)
  1. ELRANATAMAB [Suspect]
     Active Substance: ELRANATAMAB
     Indication: Plasma cell myeloma
     Dosage: 12.0 MG, EVERY WEEK
     Route: 058
     Dates: start: 20230529, end: 20230529
  2. ACETAMINOPHEN [Suspect]
     Active Substance: ACETAMINOPHEN
     Indication: Plasma cell myeloma
     Dosage: 1000 MG, 1X/DAY
     Route: 048
     Dates: start: 20230529, end: 20230711
  3. DEXAMETHASONE [Suspect]
     Active Substance: DEXAMETHASONE
     Indication: Plasma cell myeloma
     Dosage: 20 MG, ONCE
     Route: 048
     Dates: start: 20230529, end: 20230711
  4. PROMETHAZINE [Concomitant]
     Active Substance: PROMETHAZINE HYDROCHLORIDE
     Indication: Plasma cell myeloma
     Dosage: 12.5 MG, ONCE
     Route: 042
     Dates: start: 20230529, end: 20230529
  5. VALACYCLOVIR HYDROCHLORIDE [Concomitant]
     Active Substance: VALACYCLOVIR HYDROCHLORIDE
     Indication: Antiviral prophylaxis
     Dosage: 500 MG, ALTERNATE DAY
     Route: 048
     Dates: start: 201907
  6. OMEPRAZOLE [Concomitant]
     Active Substance: OMEPRAZOLE
     Indication: Prophylaxis against gastrointestinal ulcer
     Dosage: 20 MG, ALTERNATE DAY
     Route: 048
     Dates: start: 20210614
  7. ASPIRIN [Concomitant]
     Active Substance: ASPIRIN
     Indication: Thrombosis prophylaxis
     Dosage: 100 MG, ALTERNATE DAY
     Route: 048
     Dates: start: 20210614
  8. PEGYLATED GRANULOCYTE COLONY STIMULATING FACTOR [Concomitant]
     Indication: Neutropenia
     Dosage: 6 MG, 1X/DAY
     Route: 058
     Dates: start: 20230522, end: 20230522
  9. DOCUSATE SODIUM/SENNOSIDE B [Concomitant]
     Indication: Constipation prophylaxis
     Dosage: 58 MG, AS NEEDED
     Route: 048
     Dates: start: 20170120

REACTIONS (1)
  - Cytokine release syndrome [Recovered/Resolved]

NARRATIVE: CASE EVENT DATE: 20230530
